FAERS Safety Report 13340783 (Version 1)
Quarter: 2017Q1

REPORT INFORMATION
  Report Type: Spontaneous
  Country: FR (occurrence: FR)
  Receive Date: 20170316
  Receipt Date: 20170316
  Transmission Date: 20170428
  Serious: Yes (Hospitalization)
  Sender: FDA-Public Use
  Company Number: FR-009507513-1703FRA005509

PATIENT
  Age: 66 Year
  Sex: Male

DRUGS (13)
  1. LEXOMIL [Concomitant]
     Active Substance: BROMAZEPAM
     Dosage: 0.5 DF, PRN, 0.5 TABLET IN THE MORNIGN , AT NOON AND IN EVENING IF NEEDED
  2. URAPIDIL [Concomitant]
     Active Substance: URAPIDIL
     Dosage: UNKNOWN
     Route: 048
  3. CALCIUM CARBONATE. [Concomitant]
     Active Substance: CALCIUM CARBONATE
     Dosage: UNKNOWN
     Route: 048
  4. LASILIX [Concomitant]
     Active Substance: FUROSEMIDE
     Dosage: 0.25 DF, UNK
  5. AMLOR [Concomitant]
     Active Substance: AMLODIPINE BESYLATE
     Dosage: 10 MG, QPM, 1 TABLET IN THE EVENING
     Route: 048
  6. STILNOX [Concomitant]
     Active Substance: ZOLPIDEM TARTRATE
     Indication: INSOMNIA
     Dosage: 1 DF, HS
  7. AMLODIPINE [Concomitant]
     Active Substance: AMLODIPINE BESYLATE
     Dosage: UNKNOWN
     Route: 048
  8. EUPRESSYL [Concomitant]
     Active Substance: URAPIDIL
     Dosage: 1 DF, QPM
  9. ZOLPIDEM [Concomitant]
     Active Substance: ZOLPIDEM\ZOLPIDEM TARTRATE
     Dosage: UNKNOWN
     Route: 048
  10. BROMAZEPAM [Concomitant]
     Active Substance: BROMAZEPAM
     Dosage: UNKNOWN
     Route: 048
  11. TEMODAL [Suspect]
     Active Substance: TEMOZOLOMIDE
     Indication: ANAPLASTIC ASTROCYTOMA
     Dosage: 1 DF, QD
     Route: 048
     Dates: start: 20170210, end: 20170223
  12. EUPRESSYL [Concomitant]
     Active Substance: URAPIDIL
     Dosage: 1 DF, QAM
  13. LASILIX [Concomitant]
     Active Substance: FUROSEMIDE
     Dosage: 80 MG, QD

REACTIONS (1)
  - Acute kidney injury [Recovered/Resolved]

NARRATIVE: CASE EVENT DATE: 20170217
